FAERS Safety Report 14732911 (Version 2)
Quarter: 2018Q3

REPORT INFORMATION
  Report Type: Spontaneous
  Country: US (occurrence: US)
  Receive Date: 20180409
  Receipt Date: 20180705
  Transmission Date: 20181010
  Serious: No
  Sender: FDA-Public Use
  Company Number: US-PFIZER INC-2018144350

PATIENT
  Age: 60 Year
  Sex: Female

DRUGS (7)
  1. NAPROXEN. [Concomitant]
     Active Substance: NAPROXEN
     Indication: PAIN
     Dosage: 500 MG, AS NEEDED (500 MG Q12? PRN)
  2. ZOLPIDEM [Concomitant]
     Active Substance: ZOLPIDEM\ZOLPIDEM TARTRATE
     Indication: INSOMNIA
     Dosage: 10 MG, AS NEEDED (10 MG Q HS PRN)
  3. GABAPENTIN. [Suspect]
     Active Substance: GABAPENTIN
     Indication: PAIN
     Dosage: 600 MG, UNK (600 MG DAY 4?6)(300 MG Q DAY TAPER UP TO 300 MG TID OVER TWK)
  4. GABAPENTIN. [Suspect]
     Active Substance: GABAPENTIN
     Indication: SPINAL OSTEOARTHRITIS
     Dosage: 300 MG, UNK (300 MG DAY 1?3)(300 MG Q DAY TAPER UP TO 300 MG TID OVER TWK)
     Route: 048
  5. GABAPENTIN. [Suspect]
     Active Substance: GABAPENTIN
     Dosage: 900 MG, UNK (900 MG DAY 7?10)  (300 MG Q DAY TAPER UP TO 300 MG TID OVER TWK)
  6. PROZAC [Concomitant]
     Active Substance: FLUOXETINE HYDROCHLORIDE
     Indication: DEPRESSION
     Dosage: 20 MG, 1X/DAY
  7. TRAMADOL. [Concomitant]
     Active Substance: TRAMADOL
     Indication: PAIN
     Dosage: 50 MG, AS NEEDED (50 MG Q 4?6? PRN)

REACTIONS (3)
  - Drug hypersensitivity [Unknown]
  - Headache [Recovered/Resolved]
  - Product use in unapproved indication [Unknown]
